FAERS Safety Report 5321168-9 (Version None)
Quarter: 2007Q2

REPORT INFORMATION
  Report Type: 
  Country: None (occurrence: None)
  Receive Date: 20070504
  Receipt Date: 20070420
  Transmission Date: 20071010
  Serious: Yes (Hospitalization)
  Sender: FDA-Public Use
  Company Number: 2007S1002510

PATIENT
  Age: 33 Year
  Sex: Female
  Weight: 94.3482 kg

DRUGS (6)
  1. CLOZAPINE [Suspect]
     Indication: SCHIZOPHRENIA, PARANOID TYPE
     Dosage: SEE IMAGE
     Route: 048
     Dates: start: 20050303
  2. GEODON [Concomitant]
  3. HALOPERIDOL DECANOATE [Concomitant]
  4. SEROQUEL [Concomitant]
  5. XANAX [Concomitant]
  6. WELLBUTRIN XL [Concomitant]

REACTIONS (5)
  - ACCIDENTAL OVERDOSE [None]
  - BALANCE DISORDER [None]
  - HALLUCINATION, AUDITORY [None]
  - INCORRECT DOSE ADMINISTERED [None]
  - SELF-MEDICATION [None]
